FAERS Safety Report 11093423 (Version 1)
Quarter: 2015Q2

REPORT INFORMATION
  Report Type: Report from Study
  Country: US (occurrence: US)
  Receive Date: 20150506
  Receipt Date: 20150506
  Transmission Date: 20150821
  Serious: Yes (Hospitalization)
  Sender: FDA-Public Use
  Company Number: PHEH2015US007822

PATIENT
  Sex: Female
  Weight: 84.35 kg

DRUGS (2)
  1. GILENYA [Suspect]
     Active Substance: FINGOLIMOD HYDROCHLORIDE
     Indication: MULTIPLE SCLEROSIS
     Dosage: 0.5 MG, QD
     Route: 048
     Dates: start: 20140410, end: 201502
  2. PAROXETINE HCL [Concomitant]
     Active Substance: PAROXETINE HYDROCHLORIDE
     Indication: DEPRESSION
     Route: 065

REACTIONS (12)
  - Paraesthesia [Unknown]
  - Dysphagia [Unknown]
  - Non-cardiac chest pain [Unknown]
  - Muscle spasticity [Unknown]
  - Pain [Unknown]
  - Dysuria [Unknown]
  - Weight abnormal [Unknown]
  - Multiple sclerosis relapse [Unknown]
  - Fall [Unknown]
  - Gait disturbance [Unknown]
  - Seasonal allergy [Unknown]
  - Fatigue [Unknown]
